FAERS Safety Report 9304337 (Version 3)
Quarter: 2014Q2

REPORT INFORMATION
  Report Type: Spontaneous
  Country: US (occurrence: US)
  Receive Date: 20130522
  Receipt Date: 20140416
  Transmission Date: 20141212
  Serious: Yes (Disabling)
  Sender: FDA-Public Use
  Company Number: US-009507513-1305USA012225

PATIENT
  Sex: Male
  Weight: 81.91 kg

DRUGS (3)
  1. PROPECIA [Suspect]
     Indication: ALOPECIA
     Dosage: 1 MG, QD
     Route: 048
     Dates: start: 20041120
  2. FEXOFENADINE HYDROCHLORIDE [Concomitant]
     Indication: HYPERSENSITIVITY
     Dosage: UNK
     Dates: start: 20051129
  3. NASACORT [Concomitant]
     Indication: HYPERSENSITIVITY
     Dosage: UNK
     Dates: start: 20051129

REACTIONS (23)
  - Hand fracture [Unknown]
  - Blood testosterone decreased [Recovered/Resolved]
  - Genital hypoaesthesia [Unknown]
  - Prostatitis [Not Recovered/Not Resolved]
  - Oral candidiasis [Unknown]
  - Asthma [Unknown]
  - Sinus polyp [Unknown]
  - Hypercholesterolaemia [Unknown]
  - Weight loss poor [Unknown]
  - Hypoaesthesia [Unknown]
  - Arthropathy [Unknown]
  - Joint stiffness [Unknown]
  - Musculoskeletal stiffness [Unknown]
  - Hyperprolactinaemia [Unknown]
  - Anxiety [Not Recovered/Not Resolved]
  - Insomnia [Not Recovered/Not Resolved]
  - Sperm concentration decreased [Unknown]
  - Sexual dysfunction [Not Recovered/Not Resolved]
  - Semen volume decreased [Unknown]
  - Depression [Unknown]
  - Depression [Not Recovered/Not Resolved]
  - Erectile dysfunction [Not Recovered/Not Resolved]
  - Loss of libido [Unknown]
